FAERS Safety Report 4380653-7 (Version None)
Quarter: 2004Q2

REPORT INFORMATION
  Report Type: 
  Country: None (occurrence: None)
  Receive Date: 20040614
  Receipt Date: 20040602
  Transmission Date: 20050107
  Serious: Yes (Hospitalization)
  Sender: FDA-Public Use
  Company Number: HQWYE211003JUN04

PATIENT
  Sex: Female
  Weight: 72.64 kg

DRUGS (1)
  1. NORPLANT SYSTEM [Suspect]
     Indication: CONTRACEPTION
     Dosage: CAPSULES, SUBCUTANEOUS
     Route: 058

REACTIONS (12)
  - ALOPECIA [None]
  - CHEST PAIN [None]
  - COMPLICATION OF DEVICE REMOVAL [None]
  - DEPRESSION [None]
  - DYSPNOEA [None]
  - GASTRIC BYPASS [None]
  - HEADACHE [None]
  - HEPATOMEGALY [None]
  - MENORRHAGIA [None]
  - OVARIAN CYST [None]
  - VISUAL DISTURBANCE [None]
  - WEIGHT INCREASED [None]
